FAERS Safety Report 5441794-6 (Version None)
Quarter: 2007Q3

REPORT INFORMATION
  Report Type: 
  Country: None (occurrence: None)
  Receive Date: 20070830
  Receipt Date: 20070830
  Transmission Date: 20080115
  Serious: No
  Sender: FDA-Public Use
  Company Number: None

PATIENT
  Age: 75 Year
  Sex: Female
  Weight: 55.3388 kg

DRUGS (4)
  1. PREDNISONE [Suspect]
     Indication: INTERVERTEBRAL DISC PROTRUSION
     Dosage: 10 MG  3 TIMES DAILY
     Dates: start: 20070824
  2. BENICAR [Concomitant]
  3. ACTONEL [Concomitant]
  4. SYNTHROID [Concomitant]

REACTIONS (3)
  - INSOMNIA [None]
  - PALPITATIONS [None]
  - RASH [None]
